FAERS Safety Report 21977516 (Version 1)
Quarter: 2023Q1

REPORT INFORMATION
  Report Type: Report from Study
  Country: TR (occurrence: TR)
  Receive Date: 20230210
  Receipt Date: 20230210
  Transmission Date: 20230417
  Serious: Yes (Other)
  Sender: FDA-Public Use
  Company Number: TR-JNJFOC-20230209625

PATIENT

DRUGS (1)
  1. REMICADE [Suspect]
     Active Substance: INFLIXIMAB
     Indication: Product used for unknown indication
     Route: 041

REACTIONS (12)
  - Herpes zoster disseminated [Unknown]
  - Tuberculosis [Unknown]
  - Lung adenocarcinoma [Unknown]
  - Sarcoma [Unknown]
  - Cardiac failure [Unknown]
  - Systemic lupus erythematosus [Unknown]
  - Palmoplantar pustulosis [Unknown]
  - Costochondritis [Unknown]
  - Infection [Unknown]
  - Paradoxical drug reaction [Unknown]
  - Drug ineffective [Unknown]
  - Hypersensitivity [Unknown]
